FAERS Safety Report 8903357 (Version 1)
Quarter: 2012Q4

REPORT INFORMATION
  Report Type: 
  Country: US (occurrence: US)
  Receive Date: 20121113
  Receipt Date: 20121113
  Transmission Date: 20130627
  Serious: Yes (Hospitalization)
  Sender: FDA-Public Use
  Company Number: US-PERRIGO-12US009323

PATIENT
  Age: 33 Year
  Sex: Female
  Weight: 63.49 kg

DRUGS (2)
  1. ACETAMINOPHEN [Suspect]
     Indication: INTENTIONAL OVERDOSE
     Dosage: 7 g, single
     Route: 048
     Dates: start: 20121024, end: 20121024
  2. ANTIBIOTICS [Concomitant]
     Indication: FUNGAL INFECTION
     Dosage: UNK,
     Route: 048
     Dates: start: 20121024

REACTIONS (3)
  - Intentional overdose [Recovered/Resolved]
  - Drug level increased [Recovered/Resolved]
  - Fungal infection [None]
